FAERS Safety Report 24314941 (Version 1)
Quarter: 2024Q3

REPORT INFORMATION
  Report Type: Report from Study
  Country: AR (occurrence: AR)
  Receive Date: 20240913
  Receipt Date: 20240913
  Transmission Date: 20241017
  Serious: Yes (Other)
  Sender: JOHNSON AND JOHNSON
  Company Number: AR-JNJFOC-20240818075

PATIENT
  Age: 55 Year
  Sex: Female
  Weight: 68 kg

DRUGS (1)
  1. SIMPONI [Suspect]
     Active Substance: GOLIMUMAB
     Indication: Rheumatoid arthritis
     Route: 058
     Dates: start: 20220308, end: 20240823

REACTIONS (5)
  - Spinal operation [Unknown]
  - Skin ulcer [Unknown]
  - Injury [Unknown]
  - Rheumatoid arthritis [Unknown]
  - Wound complication [Unknown]

NARRATIVE: CASE EVENT DATE: 20220101
